FAERS Safety Report 14917164 (Version 2)
Quarter: 2018Q2

REPORT INFORMATION
  Report Type: Spontaneous
  Country: US (occurrence: US)
  Receive Date: 20180521
  Receipt Date: 20180528
  Transmission Date: 20180711
  Serious: Yes (Hospitalization, Other)
  Sender: FDA-Public Use
  Company Number: US-BRISTOL-MYERS SQUIBB COMPANY-BMS-2018-044231

PATIENT
  Sex: Female
  Weight: 47.62 kg

DRUGS (1)
  1. KENALOG-10 [Suspect]
     Active Substance: TRIAMCINOLONE ACETONIDE
     Indication: PRODUCT USED FOR UNKNOWN INDICATION
     Dosage: UNAVAILABLE
     Route: 065
     Dates: start: 20180313

REACTIONS (13)
  - White blood cell count decreased [Unknown]
  - Muscle atrophy [Unknown]
  - Facial pain [Unknown]
  - Anxiety [Unknown]
  - Muscle spasms [Unknown]
  - Coccydynia [Unknown]
  - Haemoglobin decreased [Unknown]
  - Blood magnesium decreased [Unknown]
  - Hospitalisation [Unknown]
  - Weight decreased [Unknown]
  - Fatigue [Unknown]
  - Flushing [Unknown]
  - Pyrexia [Unknown]
